FAERS Safety Report 9932279 (Version 2)
Quarter: 2014Q1

REPORT INFORMATION
  Report Type: Report from Study
  Country: US (occurrence: US)
  Receive Date: 20140228
  Receipt Date: 20140228
  Transmission Date: 20141002
  Serious: No
  Sender: FDA-Public Use
  Company Number: US-ABBVIE-13P-163-1169245-00

PATIENT
  Age: 31 Year
  Sex: Male

DRUGS (3)
  1. ANDROGEL [Suspect]
     Indication: HYPOGONADISM
     Dosage: 2 PACKETS TO EACH SHOULDER
     Dates: start: 201210
  2. ANDROGEL [Suspect]
     Dosage: 1 PACKETS TO EACH SHOULDER
  3. LEVOTHYROXINE [Concomitant]
     Indication: HYPOTHYROIDISM

REACTIONS (3)
  - Apathy [Not Recovered/Not Resolved]
  - Drug ineffective [Not Recovered/Not Resolved]
  - Incorrect dose administered [Not Recovered/Not Resolved]
